FAERS Safety Report 16510362 (Version 7)
Quarter: 2020Q1

REPORT INFORMATION
  Report Type: Report from Study
  Country: US (occurrence: US)
  Receive Date: 20190702
  Receipt Date: 20200313
  Transmission Date: 20200409
  Serious: Yes (Other)
  Sender: FDA-Public Use
  Company Number: PHEH2019US027681

PATIENT
  Age: 60 Year
  Sex: Male

DRUGS (3)
  1. TREPROSTINIL. [Suspect]
     Active Substance: TREPROSTINIL
     Dosage: 25 NANOGRAM PER KILOGRAM
     Route: 042
  2. TREPROSTINIL. [Suspect]
     Active Substance: TREPROSTINIL
     Dosage: 27 NG/KG/MIN
     Route: 042
     Dates: start: 20190620
  3. TREPROSTINIL. [Suspect]
     Active Substance: TREPROSTINIL
     Indication: PULMONARY ARTERIAL HYPERTENSION
     Dosage: 22 NANOGRAM PER KILOGRAM (NG/KG/MIN)
     Route: 042
     Dates: start: 20190619

REACTIONS (23)
  - Weight increased [Unknown]
  - Decreased appetite [Unknown]
  - Nasal congestion [Unknown]
  - Night sweats [Unknown]
  - Incorrect dose administered by product [Unknown]
  - Hyperhidrosis [Unknown]
  - Tinnitus [Unknown]
  - Feeling hot [Unknown]
  - Localised oedema [Unknown]
  - Palpitations [Unknown]
  - Pain in jaw [Unknown]
  - Headache [Unknown]
  - Chills [Unknown]
  - Pain in extremity [Unknown]
  - Nausea [Unknown]
  - Wrong technique in product usage process [Unknown]
  - Priapism [Unknown]
  - Oedema peripheral [Unknown]
  - Heart rate increased [Unknown]
  - Insomnia [Unknown]
  - Oedema [Recovering/Resolving]
  - Tremor [Not Recovered/Not Resolved]
  - Diaphragmalgia [Unknown]

NARRATIVE: CASE EVENT DATE: 20190625
